FAERS Safety Report 5963347-3 (Version None)
Quarter: 2008Q4

REPORT INFORMATION
  Report Type: 
  Country: None (occurrence: None)
  Receive Date: 20081124
  Receipt Date: 20081117
  Transmission Date: 20090506
  Serious: Yes (Hospitalization)
  Sender: FDA-Public Use
  Company Number: A0757693A

PATIENT
  Age: 74 Year
  Sex: Male
  Weight: 81.8 kg

DRUGS (10)
  1. AVANDIA [Suspect]
     Dosage: 4MG PER DAY
     Route: 048
     Dates: start: 20020201, end: 20070507
  2. GLUCOPHAGE [Concomitant]
  3. GLUCOTROL [Concomitant]
  4. GLUCOTROL XL [Concomitant]
  5. METFORMIN HCL [Concomitant]
  6. ZOCOR [Concomitant]
  7. PLAVIX [Concomitant]
  8. HYDROCHLOROTHIAZIDE [Concomitant]
  9. NITROGLYCERIN [Concomitant]
  10. COREG [Concomitant]

REACTIONS (5)
  - CORONARY ARTERY DISEASE [None]
  - HYPERLIPIDAEMIA [None]
  - ISCHAEMIC CARDIOMYOPATHY [None]
  - LEFT VENTRICULAR DYSFUNCTION [None]
  - MYOCARDIAL INFARCTION [None]
